FAERS Safety Report 7851133-9 (Version None)
Quarter: 2011Q4

REPORT INFORMATION
  Report Type: 
  Country: None (occurrence: None)
  Receive Date: 20111026
  Receipt Date: 20111019
  Transmission Date: 20120403
  Serious: Yes (Hospitalization)
  Sender: FDA-Public Use
  Company Number: US-AMGEN-USASP2011054129

PATIENT
  Age: 65 Year
  Sex: Female

DRUGS (1)
  1. ENBREL [Suspect]
     Indication: RHEUMATOID ARTHRITIS
     Dosage: 50 MG, QWK
     Dates: start: 20021201

REACTIONS (6)
  - PARAESTHESIA [None]
  - PAIN IN JAW [None]
  - BLOOD PRESSURE INCREASED [None]
  - CHEST PAIN [None]
  - PAIN IN EXTREMITY [None]
  - BACK PAIN [None]
